FAERS Safety Report 14128344 (Version 1)
Quarter: 2017Q4

REPORT INFORMATION
  Report Type: Spontaneous
  Country: IT (occurrence: IT)
  Receive Date: 20171026
  Receipt Date: 20171026
  Transmission Date: 20180321
  Serious: Yes (Hospitalization)
  Sender: FDA-Public Use
  Company Number: IT-BAYER-2017-199160

PATIENT
  Age: 63 Year
  Sex: Female

DRUGS (6)
  1. STIVARGA [Suspect]
     Active Substance: REGORAFENIB
     Indication: METASTASES TO LIVER
  2. TRIATEC [Concomitant]
     Active Substance: RAMIPRIL
     Dosage: DAILY DOSE 10 MG
     Route: 048
     Dates: start: 20170901
  3. STIVARGA [Suspect]
     Active Substance: REGORAFENIB
     Indication: COLON CANCER
     Dosage: UNK
     Route: 048
     Dates: start: 20171002, end: 20171006
  4. STIVARGA [Suspect]
     Active Substance: REGORAFENIB
     Indication: METASTASES TO LUNG
  5. STIVARGA [Suspect]
     Active Substance: REGORAFENIB
     Indication: METASTASES TO LYMPH NODES
  6. TARGIN [Concomitant]
     Active Substance: NALOXONE HYDROCHLORIDE\OXYCODONE HYDROCHLORIDE
     Dosage: DAILY DOSE 2 DF
     Route: 048
     Dates: start: 20170901

REACTIONS (3)
  - Hypertensive crisis [Recovering/Resolving]
  - Jaundice cholestatic [Recovering/Resolving]
  - Rash [Recovering/Resolving]

NARRATIVE: CASE EVENT DATE: 20171004
